FAERS Safety Report 13532502 (Version 2)
Quarter: 2017Q2

REPORT INFORMATION
  Report Type: Spontaneous
  Country: FR (occurrence: FR)
  Receive Date: 20170510
  Receipt Date: 20170525
  Transmission Date: 20170830
  Serious: Yes (Death)
  Sender: FDA-Public Use
  Company Number: FR-VALIDUS PHARMACEUTICALS LLC-FR-2017VAL000706

PATIENT
  Age: 34 Year
  Sex: Male

DRUGS (7)
  1. METOPROLOL TARTRATE. [Suspect]
     Active Substance: METOPROLOL TARTRATE
     Dosage: 3.5 G, QD
     Route: 065
  2. LAMOTRIGINE. [Concomitant]
     Active Substance: LAMOTRIGINE
     Indication: PRODUCT USED FOR UNKNOWN INDICATION
     Dosage: UNK
  3. LACOSAMIDE. [Suspect]
     Active Substance: LACOSAMIDE
     Indication: EPILEPSY
     Dosage: 400 MG, QD
     Route: 065
  4. CLOBAZAM [Concomitant]
     Active Substance: CLOBAZAM
     Indication: PRODUCT USED FOR UNKNOWN INDICATION
     Dosage: UNK
  5. LACOSAMIDE. [Suspect]
     Active Substance: LACOSAMIDE
     Dosage: 8.4 G, UNK
     Route: 048
  6. PERAMPANEL [Concomitant]
     Active Substance: PERAMPANEL
     Indication: PRODUCT USED FOR UNKNOWN INDICATION
     Dosage: UNK
  7. METOPROLOL TARTRATE. [Suspect]
     Active Substance: METOPROLOL TARTRATE
     Indication: PRODUCT USED FOR UNKNOWN INDICATION
     Dosage: 100 MG, QD
     Route: 065

REACTIONS (9)
  - Seizure [Fatal]
  - Mydriasis [Fatal]
  - Cardiac arrest [Fatal]
  - Atrioventricular block [Fatal]
  - Apnoea [Fatal]
  - Toxicity to various agents [Fatal]
  - Renal failure [Fatal]
  - Suicide attempt [Fatal]
  - Metabolic acidosis [Fatal]
